FAERS Safety Report 18044822 (Version 2)
Quarter: 2020Q4

REPORT INFORMATION
  Report Type: Other
  Country: CA (occurrence: CA)
  Receive Date: 20200720
  Receipt Date: 20201019
  Transmission Date: 20210113
  Serious: Yes (Other)
  Sender: FDA-Public Use
  Company Number: CA-BECTON DICKINSON-2020BDN00184

PATIENT
  Age: 42 Year
  Sex: Female
  Weight: 81 kg

DRUGS (20)
  1. METHOTREXATE. [Suspect]
     Active Substance: METHOTREXATE
  2. ERGOCALCIFEROL. [Concomitant]
     Active Substance: ERGOCALCIFEROL
  3. PREDNISONE. [Concomitant]
     Active Substance: PREDNISONE
  4. CIMZIA [Suspect]
     Active Substance: CERTOLIZUMAB PEGOL
     Dosage: 400 MG
     Route: 058
  5. HYDROXYCHLOROQUINE [Concomitant]
     Active Substance: HYDROXYCHLOROQUINE
  6. SALBUTAMOL [Concomitant]
     Active Substance: ALBUTEROL
  7. ACTEMRA [Suspect]
     Active Substance: TOCILIZUMAB
  8. ORENCIA [Suspect]
     Active Substance: ABATACEPT
     Route: 042
  9. SIMPONI [Suspect]
     Active Substance: GOLIMUMAB
     Route: 058
  10. LEFLUNOMIDE. [Suspect]
     Active Substance: LEFLUNOMIDE
  11. OXYCODONE [Suspect]
     Active Substance: OXYCODONE
  12. PANTOPRAZOLE [Concomitant]
     Active Substance: PANTOPRAZOLE
  13. VITAMIN C [Concomitant]
     Active Substance: ASCORBIC ACID
  14. ACETAMINOPHEN. [Suspect]
     Active Substance: ACETAMINOPHEN
  15. CHLORAPREP [Suspect]
     Active Substance: CHLORHEXIDINE GLUCONATE\ISOPROPYL ALCOHOL
     Route: 061
  16. ETANERCEPT [Suspect]
     Active Substance: ETANERCEPT
  17. DESOGESTREL/ETHINYL ESTRADIOL [Concomitant]
     Active Substance: DESOGESTREL\ETHINYL ESTRADIOL
  18. IBUPROFEN. [Concomitant]
     Active Substance: IBUPROFEN
  19. REACTINE [Concomitant]
  20. ZOPICLONE [Concomitant]
     Active Substance: ZOPICLONE

REACTIONS (20)
  - Asthenia [Unknown]
  - Respiratory disorder [Unknown]
  - Insomnia [Unknown]
  - Joint swelling [Unknown]
  - Lower respiratory tract infection [Unknown]
  - Night sweats [Unknown]
  - Ear pain [Unknown]
  - Pain [Unknown]
  - Body temperature increased [Unknown]
  - Rash [Unknown]
  - Diarrhoea [Unknown]
  - Peripheral swelling [Unknown]
  - Sinusitis [Unknown]
  - Abdominal pain [Unknown]
  - Back pain [Unknown]
  - Headache [Unknown]
  - Muscle spasticity [Unknown]
  - Pruritus [Unknown]
  - Urticaria [Unknown]
  - Vomiting [Unknown]
